FAERS Safety Report 17224208 (Version 1)
Quarter: 2020Q1

REPORT INFORMATION
  Report Type: Spontaneous
  Country: GB (occurrence: GB)
  Receive Date: 20200102
  Receipt Date: 20200102
  Transmission Date: 20200409
  Serious: Yes (Other)
  Sender: FDA-Public Use
  Company Number: GB-TEVA-2019-GB-1159561

PATIENT
  Age: 23 Year
  Sex: Female
  Weight: 75.8 kg

DRUGS (2)
  1. FEANOLLA [Suspect]
     Active Substance: DESOGESTREL
     Route: 048
     Dates: start: 201910, end: 201911
  2. LAMOTRIGINE. [Suspect]
     Active Substance: LAMOTRIGINE
     Indication: EPILEPSY
     Dosage: 200  MILLIGRAM
     Route: 048
     Dates: start: 20161207

REACTIONS (3)
  - Drug interaction [Unknown]
  - Maternal exposure during pregnancy [Unknown]
  - Pregnancy on oral contraceptive [Not Recovered/Not Resolved]

NARRATIVE: CASE EVENT DATE: 20191120
